FAERS Safety Report 7558676-6 (Version None)
Quarter: 2011Q2

REPORT INFORMATION
  Report Type: 
  Country: None (occurrence: None)
  Receive Date: 20110621
  Receipt Date: 20110609
  Transmission Date: 20111010
  Serious: No
  Sender: FDA-Public Use
  Company Number: US-BIOGENIDEC-2011BI021611

PATIENT
  Age: 59 Year
  Sex: Female

DRUGS (1)
  1. TYSABRI [Suspect]
     Indication: MULTIPLE SCLEROSIS
     Route: 042
     Dates: start: 20080421

REACTIONS (5)
  - DEHYDRATION [None]
  - EYELID PTOSIS [None]
  - PUPILS UNEQUAL [None]
  - BLOOD PRESSURE INCREASED [None]
  - VIITH NERVE PARALYSIS [None]
